FAERS Safety Report 10142157 (Version 2)
Quarter: 2014Q2

REPORT INFORMATION
  Report Type: Report from Study
  Country: US (occurrence: US)
  Receive Date: 20140429
  Receipt Date: 20140612
  Transmission Date: 20141212
  Serious: Yes (Hospitalization)
  Sender: FDA-Public Use
  Company Number: US-EXELIXIS-CABO-14004211

PATIENT
  Sex: Male

DRUGS (1)
  1. CABOZANTINIB [Suspect]
     Indication: PROSTATE CANCER
     Dosage: 40 MG, QD
     Route: 048
     Dates: start: 20140415, end: 20140422

REACTIONS (2)
  - Kidney infection [Unknown]
  - Off label use [Unknown]
